FAERS Safety Report 14322530 (Version 4)
Quarter: 2018Q2

REPORT INFORMATION
  Report Type: Spontaneous
  Country: JP (occurrence: JP)
  Receive Date: 20171225
  Receipt Date: 20180525
  Transmission Date: 20180711
  Serious: Yes (Death, Hospitalization, Other)
  Sender: FDA-Public Use
  Company Number: JP-GLAXOSMITHKLINE-JP2017JPN097962

PATIENT
  Age: 93 Year
  Sex: Male
  Weight: 55 kg

DRUGS (3)
  1. AVOLVE [Suspect]
     Active Substance: DUTASTERIDE
     Indication: BENIGN PROSTATIC HYPERPLASIA
     Dosage: 0.5 MG, QD
     Route: 048
     Dates: start: 20160715, end: 20171205
  2. EDIROL CAPSULE [Concomitant]
     Dosage: 0.75 ?G, 1D
     Dates: start: 20160803
  3. URIEF OD [Concomitant]
     Indication: BENIGN PROSTATIC HYPERPLASIA
     Dosage: 4 MG, BID
     Route: 048
     Dates: start: 20160506, end: 20171205

REACTIONS (14)
  - Condition aggravated [Fatal]
  - Hypoalbuminaemia [Not Recovered/Not Resolved]
  - Metastases to liver [Fatal]
  - Blood pressure decreased [Fatal]
  - Decreased appetite [Fatal]
  - Hypophagia [Unknown]
  - Breast mass [Unknown]
  - Intussusception [Fatal]
  - Diarrhoea [Unknown]
  - Colon cancer [Fatal]
  - Dehydration [Not Recovered/Not Resolved]
  - Circulatory collapse [Fatal]
  - Depressed level of consciousness [Fatal]
  - Bradypnoea [Unknown]

NARRATIVE: CASE EVENT DATE: 20170623
